FAERS Safety Report 7062373-3 (Version None)
Quarter: 2010Q4

REPORT INFORMATION
  Report Type: 
  Country: None (occurrence: None)
  Receive Date: 20101026
  Receipt Date: 20101025
  Transmission Date: 20110411
  Serious: Yes (Hospitalization)
  Sender: FDA-Public Use
  Company Number: PHHO2010DE14577

PATIENT
  Sex: Female
  Weight: 65 kg

DRUGS (3)
  1. BLINDED FTY 720 FTY+CAP+MSC [Suspect]
     Indication: MULTIPLE SCLEROSIS
     Dosage: CODE NOT BROKEN
     Route: 048
     Dates: start: 20090522
  2. BLINDED NO TREATMENT RECEIVED NOMED [Suspect]
     Indication: MULTIPLE SCLEROSIS
     Dosage: CODE NOT BROKEN
     Route: 048
     Dates: start: 20090522
  3. BLINDED PLACEBO COMP-PLA+ [Suspect]
     Indication: MULTIPLE SCLEROSIS
     Dosage: CODE NOT BROKEN
     Route: 048
     Dates: start: 20090522

REACTIONS (7)
  - BORDERLINE OVARIAN TUMOUR [None]
  - CALCINOSIS [None]
  - HAEMORRHAGE [None]
  - OEDEMA [None]
  - OMENTECTOMY [None]
  - OVARIAN CYST [None]
  - RADICAL HYSTERECTOMY [None]
